FAERS Safety Report 5264250-7 (Version None)
Quarter: 2007Q1

REPORT INFORMATION
  Report Type: 
  Country: None (occurrence: None)
  Receive Date: 20070313
  Receipt Date: 20070305
  Transmission Date: 20070707
  Serious: Yes (Hospitalization)
  Sender: FDA-Public Use
  Company Number: FR-PFIZER INC-2007017376

PATIENT
  Age: 52 Year
  Sex: Male

DRUGS (3)
  1. CELEBREX [Suspect]
     Route: 048
     Dates: start: 20070115, end: 20070116
  2. ACETAMINOPHEN W/ PROPOXYPHENE HCL [Suspect]
     Dates: start: 20070115, end: 20070117
  3. INIPOMP [Suspect]
     Route: 048
     Dates: start: 20070115, end: 20070116

REACTIONS (3)
  - MALAISE [None]
  - MUSCULOSKELETAL CHEST PAIN [None]
  - SYNCOPE [None]
